FAERS Safety Report 5908343-7 (Version None)
Quarter: 2008Q4

REPORT INFORMATION
  Report Type: 
  Country: None (occurrence: None)
  Receive Date: 20081002
  Receipt Date: 20081002
  Transmission Date: 20090506
  Serious: Yes (Hospitalization)
  Sender: FDA-Public Use
  Company Number: None

PATIENT
  Age: 73 Year
  Sex: Male

DRUGS (1)
  1. MORPHINE [Suspect]
     Indication: BACK PAIN
     Dosage: 15-30 MG BID PO
     Route: 048
     Dates: start: 20010216, end: 20080419

REACTIONS (1)
  - CONSTIPATION [None]
